FAERS Safety Report 19866024 (Version 1)
Quarter: 2021Q3

REPORT INFORMATION
  Report Type: Spontaneous
  Country: DE (occurrence: DE)
  Receive Date: 20210921
  Receipt Date: 20210921
  Transmission Date: 20211014
  Serious: Yes (Life-Threatening, Hospitalization, Other)
  Sender: FDA-Public Use
  Company Number: DE-ASTRAZENECA-2021A731246

PATIENT
  Age: 56 Year
  Sex: Male
  Weight: 85 kg

DRUGS (8)
  1. HYDROCHLOROTHIAZIDE. [Concomitant]
     Active Substance: HYDROCHLOROTHIAZIDE
     Dosage: 12.5 MG 1?0?0
  2. VALSARTAN. [Concomitant]
     Active Substance: VALSARTAN
     Dosage: 320 MG 1?0?0
  3. AMLODIPINE [Concomitant]
     Active Substance: AMLODIPINE BESYLATE
     Dosage: 5 MG 1?0?0
  4. ALLOPURINOL. [Concomitant]
     Active Substance: ALLOPURINOL
     Dosage: 300 MG 0?0?1 / 2
  5. BISOPROLOL [Concomitant]
     Active Substance: BISOPROLOL
     Dosage: 2.5 MG 1?0?0
  6. EBRANTIL [Concomitant]
     Active Substance: URAPIDIL
     Dosage: 30 MG 1?0?1
  7. ASA [Concomitant]
     Active Substance: ASPIRIN
     Dosage: 100 MG 1?0?0
  8. ROSUVASTATIN. [Suspect]
     Active Substance: ROSUVASTATIN
     Route: 048

REACTIONS (4)
  - Vertebrobasilar insufficiency [Unknown]
  - Cerebral infarction [Unknown]
  - Basilar artery thrombosis [Unknown]
  - Embolic stroke [Unknown]

NARRATIVE: CASE EVENT DATE: 202011
